FAERS Safety Report 4540510-X (Version None)
Quarter: 2004Q4

REPORT INFORMATION
  Report Type: 
  Country: None (occurrence: None)
  Receive Date: 20041229
  Receipt Date: 20041102
  Transmission Date: 20050328
  Serious: Yes (Other)
  Sender: FDA-Public Use
  Company Number: 200413431JP

PATIENT
  Age: 67 Year
  Sex: Female

DRUGS (4)
  1. ALLEGRA [Suspect]
     Indication: RHINITIS
     Dates: start: 20040625, end: 20040702
  2. CLARITH [Concomitant]
     Dates: start: 20040625, end: 20041004
  3. ACDEAM                                  /JPN/ [Concomitant]
     Dates: start: 20040528, end: 20040620
  4. FLUNASE [Concomitant]
     Dates: start: 20040528, end: 20040620

REACTIONS (10)
  - CYANOSIS [None]
  - DYSPEPSIA [None]
  - DYSPNOEA [None]
  - HYPERHIDROSIS [None]
  - LOSS OF CONSCIOUSNESS [None]
  - MALAISE [None]
  - NAUSEA [None]
  - PALLOR [None]
  - SEBORRHOEA [None]
  - VOMITING [None]
